FAERS Safety Report 6814657-9 (Version None)
Quarter: 2010Q2

REPORT INFORMATION
  Report Type: 
  Country: None (occurrence: None)
  Receive Date: 20100629
  Receipt Date: 20100616
  Transmission Date: 20101027
  Serious: Yes (Hospitalization)
  Sender: FDA-Public Use
  Company Number: 2010AP001243

PATIENT
  Age: 53 Year
  Sex: Female

DRUGS (16)
  1. OMEPRAZOLE [Suspect]
     Indication: GASTROOESOPHAGEAL REFLUX DISEASE
     Dosage: 20 MG; PO;BID
     Route: 048
     Dates: end: 20100201
  2. OMEPRAZOLE [Suspect]
     Indication: HIATUS HERNIA
     Dosage: 20 MG; PO;BID
     Route: 048
     Dates: end: 20100201
  3. ALFACALCIDOL (ALFACALCIDOL) [Concomitant]
  4. ATENOLOL [Concomitant]
  5. BETAMETHASONE [Concomitant]
  6. CALCIUM (CALCIUM) [Concomitant]
  7. CARBIMAZOLE (CARBIMAZOLE) [Concomitant]
  8. DOMPERIDONE (DOMPERIDONE) [Concomitant]
  9. FEXOFENADINE HCL [Concomitant]
  10. FLUOXETINE /N/A/ (FLUOXETINE [Concomitant]
  11. FLUTICASONE PROPIONATE [Concomitant]
  12. LOPERAMIDE (LOPERAMIDE) [Concomitant]
  13. MAGNESIUM GLYCEROPHOSPHATE (MAGNESIUM GLYCEROPHOSPHATE) [Concomitant]
  14. POTASSIUM BICARBONATE (POTASSIUM BICARBONATE) [Concomitant]
  15. SODIUM ALGINATE (SODIUM ALGINATE) [Concomitant]
  16. VITAMINS NOS (VITAMINS NOS) [Concomitant]

REACTIONS (1)
  - BLOOD MAGNESIUM DECREASED [None]
